FAERS Safety Report 7096066-3 (Version None)
Quarter: 2010Q4

REPORT INFORMATION
  Report Type: 
  Country: None (occurrence: None)
  Receive Date: 20101111
  Receipt Date: 20090601
  Transmission Date: 20110411
  Serious: No
  Sender: FDA-Public Use
  Company Number: US-KINGPHARMUSA00001-K200900664

PATIENT
  Sex: Female
  Weight: 54.422 kg

DRUGS (2)
  1. LEVOXYL [Suspect]
     Indication: HYPOTHYROIDISM
     Dosage: 50 MCG, QD
     Route: 048
     Dates: end: 20090101
  2. LEVOXYL [Suspect]
     Dosage: UNK
     Route: 048
     Dates: start: 20090201

REACTIONS (12)
  - ABDOMINAL DISTENSION [None]
  - ASTHENIA [None]
  - DIARRHOEA [None]
  - DYSPNOEA [None]
  - FLUID RETENTION [None]
  - MALAISE [None]
  - NAUSEA [None]
  - OEDEMA PERIPHERAL [None]
  - POLLAKIURIA [None]
  - PYREXIA [None]
  - VITAMIN D DEFICIENCY [None]
  - WEIGHT INCREASED [None]
